FAERS Safety Report 20857542 (Version 10)
Quarter: 2025Q4

REPORT INFORMATION
  Report Type: Report from Study
  Country: JP (occurrence: JP)
  Receive Date: 20220520
  Receipt Date: 20251226
  Transmission Date: 20260117
  Serious: Yes (Hospitalization, Other)
  Sender: ABBVIE
  Company Number: JP-TAKEDA-2022TJP046944

PATIENT
  Age: 50 Year
  Sex: Male
  Weight: 75 kg

DRUGS (13)
  1. LEUPROLIDE ACETATE [Suspect]
     Active Substance: LEUPROLIDE ACETATE
     Indication: Bulbospinal muscular atrophy congenital
     Dosage: 11.25 MILLIGRAM, Q3MONTHS
     Route: 065
     Dates: start: 20190218
  2. MEXILETINE HYDROCHLORIDE [Concomitant]
     Active Substance: MEXILETINE HYDROCHLORIDE
     Indication: Bulbospinal muscular atrophy congenital
     Dosage: 200 MILLIGRAM
     Route: 065
     Dates: start: 20230123, end: 20230417
  3. BELSOMRA [Concomitant]
     Active Substance: SUVOREXANT
     Indication: Insomnia
     Dosage: 20 MILLIGRAM
     Route: 065
     Dates: start: 20200210, end: 20200511
  4. TIZANIDINE [Concomitant]
     Active Substance: TIZANIDINE
     Indication: Musculoskeletal stiffness
     Dosage: 2 MILLIGRAM
     Route: 058
     Dates: start: 20200511, end: 20250331
  5. Etizolam sw [Concomitant]
     Indication: Product used for unknown indication
     Dosage: 0.5 MILLIGRAM
     Route: 065
     Dates: start: 20200511
  6. Etizolam sw [Concomitant]
     Indication: Product used for unknown indication
     Dosage: 1 MILLIGRAM
     Route: 065
     Dates: end: 20221031
  7. PEMAFIBRATE [Concomitant]
     Active Substance: PEMAFIBRATE
     Indication: Hypertriglyceridaemia
     Dosage: 0.2 MILLIGRAM
     Route: 065
     Dates: start: 20200803, end: 20201025
  8. PEMAFIBRATE [Concomitant]
     Active Substance: PEMAFIBRATE
     Indication: Hypertriglyceridaemia
     Dosage: 0.1 MILLIGRAM
     Route: 065
     Dates: start: 20201026
  9. AMLODIPINE [Concomitant]
     Active Substance: AMLODIPINE BESYLATE
     Indication: Product used for unknown indication
     Dosage: 5 MILLIGRAM
     Route: 065
     Dates: start: 20211004
  10. BROTIZOLAM [Concomitant]
     Active Substance: BROTIZOLAM
     Indication: Product used for unknown indication
     Dosage: 0.25 MILLIGRAM
     Route: 065
     Dates: start: 20211004
  11. ZOLPIDEM TARTRATE JG [Concomitant]
     Indication: Product used for unknown indication
     Dosage: 10 MILLIGRAM
     Route: 065
     Dates: start: 20211004
  12. DAYVIGO [Concomitant]
     Active Substance: LEMBOREXANT
     Indication: Product used for unknown indication
     Dosage: 5 MILLIGRAM
     Route: 065
     Dates: start: 20221031, end: 20230417
  13. AZILSARTAN KAMEDOXOMIL [Concomitant]
     Active Substance: AZILSARTAN KAMEDOXOMIL
     Indication: Product used for unknown indication
     Dosage: 20 MILLIGRAM
     Route: 065

REACTIONS (4)
  - Stress cardiomyopathy [Recovered/Resolved]
  - Injury [Recovered/Resolved with Sequelae]
  - Hypertension [Recovering/Resolving]
  - Cardiac failure [Recovered/Resolved]

NARRATIVE: CASE EVENT DATE: 20210512
